FAERS Safety Report 14997781 (Version 5)
Quarter: 2018Q4

REPORT INFORMATION
  Report Type: Spontaneous
  Country: US (occurrence: US)
  Receive Date: 20180611
  Receipt Date: 20181203
  Transmission Date: 20190204
  Serious: No
  Sender: FDA-Public Use
  Company Number: US-BIOGEN-2018BI00591970

PATIENT
  Age: 59 Year
  Sex: Female

DRUGS (4)
  1. TECFIDERA [Suspect]
     Active Substance: DIMETHYL FUMARATE
     Indication: MULTIPLE SCLEROSIS
     Dosage: STARTING DOSE
     Route: 048
  2. TECFIDERA [Suspect]
     Active Substance: DIMETHYL FUMARATE
     Dosage: MAINTENANCE DOSE
     Route: 048
  3. TECFIDERA [Suspect]
     Active Substance: DIMETHYL FUMARATE
     Dosage: MAINTENANCE DOSE
     Route: 048
     Dates: start: 201805
  4. TECFIDERA [Suspect]
     Active Substance: DIMETHYL FUMARATE
     Route: 065
     Dates: start: 20180611

REACTIONS (20)
  - Influenza like illness [Unknown]
  - Ocular discomfort [Unknown]
  - Amnesia [Unknown]
  - Abdominal discomfort [Unknown]
  - Anxiety [Not Recovered/Not Resolved]
  - Abdominal pain upper [Unknown]
  - Diarrhoea [Not Recovered/Not Resolved]
  - Dysphagia [Unknown]
  - Weight decreased [Unknown]
  - Headache [Unknown]
  - Back pain [Unknown]
  - Hypoacusis [Unknown]
  - Intervertebral disc compression [Not Recovered/Not Resolved]
  - Affect lability [Unknown]
  - Skin burning sensation [Unknown]
  - Pain in extremity [Unknown]
  - Arthralgia [Unknown]
  - Malaise [Unknown]
  - Mental impairment [Unknown]
  - Pain [Unknown]

NARRATIVE: CASE EVENT DATE: 201806
